FAERS Safety Report 4333766-X (Version None)
Quarter: 2004Q2

REPORT INFORMATION
  Report Type: 
  Country: None (occurrence: None)
  Receive Date: 20040402
  Receipt Date: 20040317
  Transmission Date: 20050107
  Serious: Yes (Congenital Anomaly)
  Sender: FDA-Public Use
  Company Number: DSA_24103_2004

PATIENT
  Sex: Female
  Weight: 4.8 kg

DRUGS (12)
  1. TEMESTA [Suspect]
  2. ANAFRANIL [Suspect]
     Dosage: 75 MG BID
  3. ORUGESIC [Concomitant]
  4. ACETAMINOPHEN [Concomitant]
  5. MYOLASTAN [Concomitant]
  6. TRANXENE [Suspect]
     Dosage: 50 MG BID
  7. XANAX [Suspect]
     Dosage: 0.5 MG BID
  8. MOPRAL [Concomitant]
  9. DUPHALAC [Concomitant]
  10. DORBITOL [Concomitant]
  11. TRIFLUCAN [Concomitant]
  12. PRIMPERAN INJ [Concomitant]

REACTIONS (16)
  - AGITATION NEONATAL [None]
  - ANORECTAL DISORDER [None]
  - COMPLICATIONS OF MATERNAL EXPOSURE TO THERAPEUTIC DRUGS [None]
  - DRUG WITHDRAWAL SYNDROME [None]
  - ELECTROENCEPHALOGRAM ABNORMAL [None]
  - FEEDING PROBLEM IN NEWBORN [None]
  - GASTROOESOPHAGEAL REFLUX DISEASE [None]
  - HYPOTONIA NEONATAL [None]
  - LARYNGOMALACIA [None]
  - MATERNAL DRUGS AFFECTING FOETUS [None]
  - MICROCEPHALY [None]
  - MONOCYTOSIS [None]
  - NEONATAL TACHYPNOEA [None]
  - NERVOUS SYSTEM DISORDER [None]
  - OESOPHAGITIS [None]
  - POLYHYDRAMNIOS [None]
